FAERS Safety Report 24983383 (Version 1)
Quarter: 2025Q1

REPORT INFORMATION
  Report Type: Report from Study
  Country: US (occurrence: US)
  Receive Date: 20250219
  Receipt Date: 20250219
  Transmission Date: 20250408
  Serious: Yes (Other)
  Sender: ABBVIE
  Company Number: US-ABBVIE-6053614

PATIENT
  Age: 60 Year
  Sex: Female

DRUGS (1)
  1. RINVOQ [Suspect]
     Active Substance: UPADACITINIB
     Indication: Product used for unknown indication
     Route: 048
     Dates: start: 20241214

REACTIONS (15)
  - Systemic lupus erythematosus [Unknown]
  - Abdominal pain upper [Unknown]
  - Genital blister [Unknown]
  - Gait disturbance [Unknown]
  - Skin burning sensation [Unknown]
  - Vulvovaginal dryness [Unknown]
  - Vision blurred [Unknown]
  - Oropharyngeal pain [Unknown]
  - Dyspepsia [Unknown]
  - Toothache [Unknown]
  - Headache [Unknown]
  - Pyrexia [Unknown]
  - Diabetes mellitus [Unknown]
  - Nausea [Unknown]
  - Haematochezia [Recovered/Resolved]

NARRATIVE: CASE EVENT DATE: 20241201
